FAERS Safety Report 8810146 (Version 2)
Quarter: 2012Q4

REPORT INFORMATION
  Report Type: 
  Country: US (occurrence: US)
  Receive Date: 20120926
  Receipt Date: 20121023
  Transmission Date: 20130627
  Serious: No
  Sender: FDA-Public Use
  Company Number: US-ASTRAZENECA-2012SE72829

PATIENT
  Age: 37 Year
  Sex: Female
  Weight: 80.3 kg

DRUGS (9)
  1. SEROQUEL XR [Suspect]
     Indication: MAJOR DEPRESSION
     Route: 048
     Dates: start: 20120709, end: 20120820
  2. SEROQUEL XR [Suspect]
     Indication: MAJOR DEPRESSION
     Route: 048
     Dates: start: 20120820, end: 20120917
  3. SEROQUEL XR [Suspect]
     Indication: MAJOR DEPRESSION
     Route: 048
     Dates: start: 20120917
  4. SOMA [Concomitant]
  5. PRISTIQ [Concomitant]
  6. HYDROXAZINE [Concomitant]
  7. ESTROGEN [Concomitant]
  8. IBUPROPHEN [Concomitant]
  9. STADOL [Concomitant]

REACTIONS (4)
  - Depression [Unknown]
  - Tachyphrenia [Unknown]
  - Insomnia [Unknown]
  - Somnolence [Unknown]
